FAERS Safety Report 6020922-8 (Version None)
Quarter: 2008Q4

REPORT INFORMATION
  Report Type: 
  Country: None (occurrence: None)
  Receive Date: 20081229
  Receipt Date: 20081218
  Transmission Date: 20090506
  Serious: Yes (Death, Other)
  Sender: FDA-Public Use
  Company Number: US-BAYER-200814945BCC

PATIENT
  Age: 77 Year
  Sex: Female
  Weight: 59 kg

DRUGS (9)
  1. ASPIRIN [Suspect]
     Indication: STENT PLACEMENT
     Dosage: TOTAL DAILY DOSE: 325 MG  UNIT DOSE: 325 MG
     Route: 048
     Dates: start: 20080604, end: 20080609
  2. PLAVIX [Suspect]
     Indication: STENT PLACEMENT
     Dosage: TOTAL DAILY DOSE: 75 MG  UNIT DOSE: 75 MG
     Route: 048
     Dates: start: 20080604, end: 20080609
  3. LOVENOX [Suspect]
     Indication: ATRIAL FIBRILLATION
     Dosage: TOTAL DAILY DOSE: 60 MG  UNIT DOSE: 60 MG
     Route: 058
     Dates: start: 20080608, end: 20080608
  4. INSULIN ASPART [Concomitant]
  5. GLIMEPIRIDE [Concomitant]
  6. POTASSIUM CHLORIDE [Concomitant]
     Route: 048
  7. MAGNESIUM SULFATE [Concomitant]
     Route: 042
  8. DILTIAZEM [Concomitant]
     Dosage: TOTAL DAILY DOSE: 180 MG  UNIT DOSE: 60 MG
  9. HYDROCODONE BITARTRATE AND ACETAMINOPHEN [Concomitant]

REACTIONS (12)
  - ABDOMINAL WALL HAEMATOMA [None]
  - ACTIVATED PARTIAL THROMBOPLASTIN TIME PROLONGED [None]
  - ARTERIAL HAEMORRHAGE [None]
  - ATRIAL FIBRILLATION [None]
  - BLOOD GLUCOSE INCREASED [None]
  - CARDIAC ARREST [None]
  - HAEMODIALYSIS [None]
  - HYPOTENSION [None]
  - IATROGENIC INJURY [None]
  - INTERNATIONAL NORMALISED RATIO INCREASED [None]
  - PROTHROMBIN TIME PROLONGED [None]
  - RENAL FAILURE [None]
